FAERS Safety Report 18386179 (Version 3)
Quarter: 2020Q4

REPORT INFORMATION
  Report Type: Spontaneous
  Country: US (occurrence: US)
  Receive Date: 20201015
  Receipt Date: 20201102
  Transmission Date: 20210114
  Serious: No
  Sender: FDA-Public Use
  Company Number: US-PFIZER INC-2020396958

PATIENT
  Age: 82 Year
  Sex: Male

DRUGS (2)
  1. LYRICA [Suspect]
     Active Substance: PREGABALIN
     Dosage: 50 MG
  2. LYRICA [Suspect]
     Active Substance: PREGABALIN
     Dosage: 150 MG

REACTIONS (1)
  - Hypoacusis [Unknown]
